FAERS Safety Report 18570372 (Version 1)
Quarter: 2020Q4

REPORT INFORMATION
  Report Type: Report from Study
  Country: PL (occurrence: PL)
  Receive Date: 20201202
  Receipt Date: 20201202
  Transmission Date: 20210114
  Serious: Yes (Hospitalization)
  Sender: FDA-Public Use
  Company Number: PL-GW PHARMA-201705PLGW0289

PATIENT

DRUGS (9)
  1. TOPAMAX [Concomitant]
     Active Substance: TOPIRAMATE
     Dosage: 75 MILLIGRAM, BID
     Route: 048
     Dates: start: 20170515
  2. EPIDIOLEX [Suspect]
     Active Substance: CANNABIDIOL
     Indication: LENNOX-GASTAUT SYNDROME
     Dosage: 25MG/KG, 280 MILIGRAM, BID
     Route: 048
     Dates: start: 20160115
  3. LAMTRINS [Concomitant]
     Dosage: 112.5 MILLIGRAM, BID
     Route: 048
     Dates: start: 20170514, end: 20170519
  4. LAMTRINS [Concomitant]
     Dosage: 100 MILLIGRAM, BID
     Route: 048
     Dates: start: 20170520
  5. FRISIUM [Concomitant]
     Active Substance: CLOBAZAM
     Indication: SEIZURE
     Dosage: 2.5 MILLIGRAM, BID
     Route: 048
     Dates: start: 20161015, end: 20170601
  6. LAMTRINS [Concomitant]
     Indication: EPILEPSY
     Dosage: 100 MILLIGRAM, BID
     Route: 048
     Dates: start: 201301, end: 20170513
  7. RELSED [Concomitant]
     Dosage: 10 MILLIGRAM, PRN
     Route: 054
     Dates: start: 20170515
  8. RELSED [Concomitant]
     Indication: SEIZURE
     Dosage: 5 MILLIGRAM, PRN
     Route: 054
     Dates: start: 201005, end: 20170514
  9. TOPAMAX [Concomitant]
     Active Substance: TOPIRAMATE
     Indication: EPILEPSY
     Dosage: 25 MILLIGRAM, BID
     Route: 048
     Dates: start: 20160408, end: 20170514

REACTIONS (1)
  - Seizure [Recovered/Resolved]

NARRATIVE: CASE EVENT DATE: 20170514
